FAERS Safety Report 10226647 (Version 1)
Quarter: 2014Q2

REPORT INFORMATION
  Report Type: Spontaneous
  Country: SE (occurrence: SE)
  Receive Date: 20140609
  Receipt Date: 20140609
  Transmission Date: 20141212
  Serious: Yes (Other)
  Sender: FDA-Public Use
  Company Number: PHHY2014SE068192

PATIENT
  Age: 60 Year
  Sex: Female

DRUGS (3)
  1. GILENYA [Suspect]
     Route: 048
     Dates: start: 20121214, end: 20140408
  2. SAROTEN [Suspect]
     Dates: start: 20110111, end: 20140408
  3. DETRUSITOL [Suspect]
     Dates: start: 20110317, end: 20140526

REACTIONS (1)
  - Congestive cardiomyopathy [Not Recovered/Not Resolved]
